FAERS Safety Report 6989704-4 (Version None)
Quarter: 2010Q3

REPORT INFORMATION
  Report Type: 
  Country: None (occurrence: None)
  Receive Date: 20100916
  Receipt Date: 20100907
  Transmission Date: 20110219
  Serious: Yes (Other)
  Sender: FDA-Public Use
  Company Number: JP-MERCK-1009USA01252

PATIENT
  Age: 72 Year
  Sex: Female

DRUGS (9)
  1. ZETIA [Suspect]
     Indication: HYPERCHOLESTEROLAEMIA
     Route: 048
     Dates: start: 20100827, end: 20100904
  2. LIPIDIL [Concomitant]
     Route: 065
     Dates: start: 20100827
  3. PROMAC [Concomitant]
     Route: 065
  4. TOUGHMAC E [Concomitant]
     Route: 065
  5. ALINAMIN F (FURSULTIAMINE HYDROCHLORIDE) [Concomitant]
     Route: 065
  6. JUVELA N [Concomitant]
     Route: 065
  7. MERISLON [Concomitant]
     Route: 065
  8. ISALON [Concomitant]
     Route: 065
  9. NAUZELIN [Concomitant]
     Route: 065

REACTIONS (4)
  - DEHYDRATION [None]
  - NAUSEA [None]
  - SYNCOPE [None]
  - VOMITING [None]
